FAERS Safety Report 15143114 (Version 1)
Quarter: 2018Q3

REPORT INFORMATION
  Report Type: Spontaneous
  Country: US (occurrence: US)
  Receive Date: 20180713
  Receipt Date: 20180713
  Transmission Date: 20181010
  Serious: Yes (Hospitalization, Other)
  Sender: FDA-Public Use
  Company Number: US-AMGEN-USASP2018094035

PATIENT
  Age: 58 Year
  Sex: Male

DRUGS (6)
  1. CARFILZOMIB [Suspect]
     Active Substance: CARFILZOMIB
     Indication: PLASMA CELL MYELOMA
     Dosage: 38 MG, ON DAYS 1, 2, 7, 8, 14 AND 15
     Route: 042
     Dates: start: 2018, end: 2018
  2. CARFILZOMIB [Suspect]
     Active Substance: CARFILZOMIB
     Dosage: 50 MG, ON DAYS 1, 2, 8, 9, 15, AND 16
     Route: 042
     Dates: start: 2018, end: 2018
  3. LENALIDOMIDE [Concomitant]
     Active Substance: LENALIDOMIDE
     Indication: PLASMA CELL MYELOMA
     Dosage: UNK
     Dates: start: 2018, end: 2018
  4. CARFILZOMIB [Suspect]
     Active Substance: CARFILZOMIB
     Dosage: 50 MG, ON DAYS 1, 2, 8, AND 9
     Route: 042
     Dates: start: 2018, end: 2018
  5. DEXAMETHASONE. [Concomitant]
     Active Substance: DEXAMETHASONE
     Indication: PLASMA CELL MYELOMA
     Dosage: UNK
     Dates: start: 2018, end: 2018
  6. CARFILZOMIB [Suspect]
     Active Substance: CARFILZOMIB
     Dosage: 50 MG, ON DAYS 1 AND 2
     Route: 042
     Dates: start: 2018, end: 2018

REACTIONS (4)
  - Influenza [Unknown]
  - Acute hepatic failure [Recovering/Resolving]
  - Cardiac disorder [Unknown]
  - Respiratory disorder [Unknown]

NARRATIVE: CASE EVENT DATE: 2018
